FAERS Safety Report 19616065 (Version 4)
Quarter: 2021Q4

REPORT INFORMATION
  Report Type: Report from Study
  Country: DE (occurrence: DE)
  Receive Date: 20210727
  Receipt Date: 20211020
  Transmission Date: 20220304
  Serious: Yes (Hospitalization, Congenital Anomaly)
  Sender: FDA-Public Use
  Company Number: DE-BIOGEN-2021BI01033541

PATIENT
  Age: 6 Month
  Sex: Male
  Weight: 3.12 kg

DRUGS (2)
  1. PLEGRIDY [Suspect]
     Active Substance: PEGINTERFERON BETA-1A
     Indication: Maternal exposure timing unspecified
     Route: 064
     Dates: start: 20150515, end: 20170909
  2. PLEGRIDY [Suspect]
     Active Substance: PEGINTERFERON BETA-1A
     Route: 064
     Dates: start: 20150515, end: 20170909

REACTIONS (3)
  - Hypospadias [Recovered/Resolved]
  - Congenital urethral anomaly [Recovered/Resolved]
  - Foetal exposure during pregnancy [Recovered/Resolved]

NARRATIVE: CASE EVENT DATE: 20181126
